FAERS Safety Report 19421220 (Version 1)
Quarter: 2021Q2

REPORT INFORMATION
  Report Type: Spontaneous
  Country: AR (occurrence: AR)
  Receive Date: 20210615
  Receipt Date: 20210615
  Transmission Date: 20210717
  Serious: Yes (Other)
  Sender: FDA-Public Use
  Company Number: AR-PFIZER INC-2021641672

PATIENT
  Age: 86 Year
  Sex: Female

DRUGS (1)
  1. IBRANCE [Suspect]
     Active Substance: PALBOCICLIB
     Indication: BREAST CANCER METASTATIC
     Dosage: 125 MG, CYCLIC (DAILY, SCHEME 3 X 1)
     Dates: start: 20190611, end: 20210424

REACTIONS (5)
  - Diarrhoea [Recovered/Resolved]
  - Cardiac disorder [Unknown]
  - Coagulopathy [Unknown]
  - Thyroid disorder [Unknown]
  - Rhinalgia [Recovered/Resolved]
